FAERS Safety Report 14918121 (Version 1)
Quarter: 2018Q2

REPORT INFORMATION
  Report Type: Spontaneous
  Country: US (occurrence: US)
  Receive Date: 20180502
  Receipt Date: 20180502
  Transmission Date: 20180711
  Serious: Yes (Congenital Anomaly)
  Sender: FDA-Public Use
  Company Number: None

PATIENT
  Age: 32 Year
  Sex: Female

DRUGS (1)
  1. LOVENOX [Suspect]
     Active Substance: ENOXAPARIN SODIUM
     Indication: THROMBOSIS
     Dosage: ?          OTHER ROUTE:INJECTED BELLY?
     Dates: start: 20120901, end: 20130310

REACTIONS (3)
  - Thrombosis [None]
  - Small for dates baby [None]
  - Developmental delay [None]

NARRATIVE: CASE EVENT DATE: 20130319
